FAERS Safety Report 7421030-1 (Version None)
Quarter: 2011Q2

REPORT INFORMATION
  Report Type: 
  Country: None (occurrence: None)
  Receive Date: 20110418
  Receipt Date: 20110408
  Transmission Date: 20111010
  Serious: Yes (Other)
  Sender: FDA-Public Use
  Company Number: JP-ASTRAZENECA-2011SE20931

PATIENT
  Age: 44 Year
  Sex: Female

DRUGS (2)
  1. ZOMIG [Suspect]
     Dosage: TOOK 14 TABLETS OF ZOMIG.
     Route: 048
  2. UNKNOWN DRUG [Suspect]
     Route: 065

REACTIONS (3)
  - OVERDOSE [None]
  - BLOOD PRESSURE DECREASED [None]
  - ARRHYTHMIA [None]
